FAERS Safety Report 22605696 (Version 1)
Quarter: 2023Q2

REPORT INFORMATION
  Report Type: Spontaneous
  Country: AT (occurrence: AT)
  Receive Date: 20230615
  Receipt Date: 20230615
  Transmission Date: 20230722
  Serious: Yes (Hospitalization, Other)
  Sender: FDA-Public Use
  Company Number: AT-009507513-2305AUT003640

PATIENT
  Age: 71 Year
  Sex: Female
  Weight: 68 kg

DRUGS (5)
  1. CARBOPLATIN [Suspect]
     Active Substance: CARBOPLATIN
     Indication: Triple negative breast cancer
     Dosage: UNK, WEEKLY
     Dates: start: 20230102, end: 20230123
  2. PEMBROLIZUMAB [Suspect]
     Active Substance: PEMBROLIZUMAB
     Indication: Triple negative breast cancer
     Dosage: UNK, EVERY 3 WEEKS
     Dates: start: 20221003, end: 202212
  3. PEMBROLIZUMAB [Suspect]
     Active Substance: PEMBROLIZUMAB
     Dosage: UNK
     Dates: start: 20230102, end: 20230123
  4. CYCLOPHOSPHAMIDE\EPIRUBICIN [Suspect]
     Active Substance: CYCLOPHOSPHAMIDE\EPIRUBICIN
     Indication: Triple negative breast cancer
     Dosage: UNK UNK, EVERY 3 WEEKS
     Dates: start: 20221003, end: 202212
  5. TAXOL [Suspect]
     Active Substance: PACLITAXEL
     Indication: Triple negative breast cancer
     Dosage: UNK, WEEKLY
     Dates: start: 20230102, end: 20230123

REACTIONS (16)
  - Tubulointerstitial nephritis [Unknown]
  - Inappropriate antidiuretic hormone secretion [Unknown]
  - Autoimmune pancreatitis [Unknown]
  - Pancreatitis [Unknown]
  - Acute kidney injury [Unknown]
  - Immune-mediated neurological disorder [Unknown]
  - Nephrogenic anaemia [Unknown]
  - Adrenalitis [Unknown]
  - Guillain-Barre syndrome [Recovering/Resolving]
  - Hepatitis [Unknown]
  - Pain [Recovering/Resolving]
  - Limb discomfort [Recovering/Resolving]
  - Gamma-glutamyltransferase increased [Unknown]
  - Liver function test increased [Unknown]
  - Hypophysitis [Unknown]
  - Off label use [Unknown]

NARRATIVE: CASE EVENT DATE: 20230101
